FAERS Safety Report 5099379-X (Version None)
Quarter: 2006Q3

REPORT INFORMATION
  Report Type: 
  Country: None (occurrence: None)
  Receive Date: 20060731
  Receipt Date: 20060622
  Transmission Date: 20061208
  Serious: No
  Sender: FDA-Public Use
  Company Number: 2006PV016164

PATIENT
  Age: 29 Year
  Sex: Female
  Weight: 129.2752 kg

DRUGS (8)
  1. BYETTA [Suspect]
     Indication: DIABETES MELLITUS NON-INSULIN-DEPENDENT
     Dosage: 5 MCG;BID;SC
     Route: 058
     Dates: start: 20060604
  2. METFORMIN HCL [Concomitant]
  3. LIPITOR [Concomitant]
  4. DDAVP [Concomitant]
  5. LEVOTHYROXINE SODIUM [Concomitant]
  6. WELLBUTRIN [Concomitant]
  7. PRILOSEC [Concomitant]
  8. HYDROCORTISONE ACETATE [Concomitant]

REACTIONS (1)
  - WEIGHT DECREASED [None]
